FAERS Safety Report 22372482 (Version 1)
Quarter: 2023Q2

REPORT INFORMATION
  Report Type: Spontaneous
  Country: US (occurrence: None)
  Receive Date: 20230525
  Receipt Date: 20230525
  Transmission Date: 20230721
  Serious: Yes (Other)
  Sender: FDA-Public Use
  Company Number: None

PATIENT
  Age: 19 Year
  Sex: Female
  Weight: 56.7 kg

DRUGS (3)
  1. REBINYN [Suspect]
     Active Substance: COAGULATION FACTOR IX (RECOMBINANT), GLYCOPEGYLATED
     Indication: Factor IX deficiency
     Dosage: FREQUENCY : WEEKLY;?
     Route: 042
     Dates: start: 20230317
  2. NOVOSEVEN [Concomitant]
  3. ANNOVERA VAGINAL RING [Concomitant]

REACTIONS (1)
  - Thrombosis in device [None]
